FAERS Safety Report 9603757 (Version 1)
Quarter: 2013Q4

REPORT INFORMATION
  Report Type: Spontaneous
  Country: US (occurrence: US)
  Receive Date: 20131007
  Receipt Date: 20131007
  Transmission Date: 20140711
  Serious: No
  Sender: FDA-Public Use
  Company Number: US-009507513-1310USA000974

PATIENT
  Age: 30 Year
  Sex: Female

DRUGS (4)
  1. NUVARING [Suspect]
     Indication: CONTRACEPTION
     Dosage: ^AS DIRECTED^
     Route: 067
     Dates: start: 201109
  2. NUVARING [Suspect]
     Indication: MENSTRUAL CYCLE MANAGEMENT
  3. MAXALT [Suspect]
     Indication: MIGRAINE
     Route: 048
  4. BOTOX [Suspect]
     Indication: MIGRAINE
     Dosage: UNK
     Dates: start: 2013

REACTIONS (2)
  - Feeling abnormal [Unknown]
  - Nausea [Unknown]
